FAERS Safety Report 9133237 (Version 1)
Quarter: 2013Q1

REPORT INFORMATION
  Report Type: Spontaneous
  Country: CA (occurrence: CA)
  Receive Date: 20130301
  Receipt Date: 20130301
  Transmission Date: 20140127
  Serious: Yes (Other)
  Sender: FDA-Public Use
  Company Number: CA-ASTRAZENECA-2013SE11730

PATIENT
  Age: 46 Year
  Sex: Female

DRUGS (5)
  1. SEROQUEL XR [Suspect]
     Indication: SCHIZOPHRENIA
     Route: 048
  2. SEROQUEL XR [Suspect]
     Indication: SCHIZOPHRENIA
     Route: 048
  3. UNKNOWN DEPOT [Concomitant]
  4. DILANTIN [Concomitant]
     Indication: CONVULSION
  5. EPIVAL [Concomitant]

REACTIONS (4)
  - Convulsion [Unknown]
  - Tongue biting [Unknown]
  - Dyskinesia [Unknown]
  - Dystonia [Unknown]
